FAERS Safety Report 24141773 (Version 2)
Quarter: 2024Q3

REPORT INFORMATION
  Report Type: Spontaneous
  Country: US (occurrence: US)
  Receive Date: 20240726
  Receipt Date: 20240726
  Transmission Date: 20241017
  Serious: Yes (Other)
  Sender: AMGEN
  Company Number: US-AMGEN-USASP2024146946

PATIENT

DRUGS (2)
  1. IMDELLTRA [Suspect]
     Active Substance: TARLATAMAB-DLLE
     Indication: Small cell lung cancer
     Dosage: STEP UP DOSE
     Route: 065
  2. IMDELLTRA [Suspect]
     Active Substance: TARLATAMAB-DLLE
     Dosage: UNK, Q2WK
     Route: 065

REACTIONS (1)
  - Immune effector cell-associated neurotoxicity syndrome [Unknown]
